FAERS Safety Report 9858679 (Version 1)
Quarter: 2014Q1

REPORT INFORMATION
  Report Type: Spontaneous
  Country: US (occurrence: None)
  Receive Date: 20140129
  Receipt Date: 20140129
  Transmission Date: 20141002
  Serious: Yes (Other)
  Sender: FDA-Public Use
  Company Number: ADR-2014213007

PATIENT
  Age: 20 Year
  Sex: Female

DRUGS (1)
  1. SERTRALINE TABLETS [Suspect]
     Indication: ACUTE PSYCHOSIS
     Route: 048

REACTIONS (1)
  - Oedema peripheral [None]
